FAERS Safety Report 9373604 (Version 1)
Quarter: 2013Q2

REPORT INFORMATION
  Report Type: Spontaneous
  Country: US (occurrence: US)
  Receive Date: 20130627
  Receipt Date: 20130627
  Transmission Date: 20140414
  Serious: Yes (Other)
  Sender: FDA-Public Use
  Company Number: PHEH2013US013548

PATIENT
  Age: 52 Year
  Sex: Female
  Weight: 61 kg

DRUGS (1)
  1. FEMARA [Suspect]
     Dosage: UNK UKN, UNK

REACTIONS (12)
  - Libido decreased [Unknown]
  - Constipation [Unknown]
  - Arthralgia [Unknown]
  - Dry mouth [Unknown]
  - Hot flush [Unknown]
  - Dysgeusia [Unknown]
  - Aggression [Unknown]
  - Neutropenia [Unknown]
  - Muscle spasms [Unknown]
  - Disturbance in attention [Unknown]
  - Insomnia [Unknown]
  - Anxiety [Unknown]
